FAERS Safety Report 22187647 (Version 2)
Quarter: 2023Q2

REPORT INFORMATION
  Report Type: Report from Study
  Country: US (occurrence: US)
  Receive Date: 20230407
  Receipt Date: 20230418
  Transmission Date: 20230721
  Serious: Yes (Hospitalization)
  Sender: FDA-Public Use
  Company Number: US-ABBVIE-4718425

PATIENT
  Age: 66 Year
  Sex: Female

DRUGS (2)
  1. SKYRIZI [Suspect]
     Active Substance: RISANKIZUMAB-RZAA
     Indication: Psoriasis
     Dosage: FORM STRENGTH- 150 MG?2ND REGIMEN
     Route: 058
     Dates: start: 20230302
  2. SKYRIZI [Suspect]
     Active Substance: RISANKIZUMAB-RZAA
     Dosage: FORM STRENGTH- 150 MG?1ST REGIMEN
     Route: 058

REACTIONS (3)
  - Hypertension [Recovering/Resolving]
  - Sinusitis [Recovering/Resolving]
  - Nerve block [Unknown]

NARRATIVE: CASE EVENT DATE: 20230301
